FAERS Safety Report 14206857 (Version 2)
Quarter: 2017Q4

REPORT INFORMATION
  Report Type: Report from Study
  Country: None (occurrence: DE)
  Receive Date: 20171121
  Receipt Date: 20171201
  Transmission Date: 20180321
  Serious: Yes (Other)
  Sender: FDA-Public Use
  Company Number: DE-ABBVIE-17K-062-2169197-00

PATIENT
  Age: 74 Year
  Sex: Female

DRUGS (1)
  1. DUODOPA [Suspect]
     Active Substance: CARBIDOPA\LEVODOPA
     Indication: PARKINSON^S DISEASE
     Dosage: MD 6.5ML / CRD 3.0ML/H / ED 2.0ML
     Route: 050
     Dates: start: 20140127

REACTIONS (2)
  - Weight decreased [Unknown]
  - Cataract [Unknown]

NARRATIVE: CASE EVENT DATE: 201611
